FAERS Safety Report 8427987-4 (Version None)
Quarter: 2012Q2

REPORT INFORMATION
  Report Type: 
  Country: None (occurrence: None)
  Receive Date: 20120611
  Receipt Date: 20120605
  Transmission Date: 20120825
  Serious: Yes (Other)
  Sender: FDA-Public Use
  Company Number: PHHY2012BR049008

PATIENT
  Sex: Female

DRUGS (3)
  1. ANTIHYPERTENSIVE DRUGS [Concomitant]
     Dosage: UNK UKN, UNK
  2. ANTIALLERGIC AGENTS [Concomitant]
     Dosage: UNK UKN, UNK
  3. EXELON [Suspect]
     Indication: MEMORY IMPAIRMENT
     Dosage: 2 DF, DAILY

REACTIONS (3)
  - HYDROCEPHALUS [None]
  - EXOSTOSIS [None]
  - SPINAL PAIN [None]
